FAERS Safety Report 15560170 (Version 2)
Quarter: 2018Q4

REPORT INFORMATION
  Report Type: Report from Study
  Country: BR (occurrence: BR)
  Receive Date: 20181029
  Receipt Date: 20181226
  Transmission Date: 20190205
  Serious: Yes (Other)
  Sender: FDA-Public Use
  Company Number: BR-EMD SERONO-E2B_90057614

PATIENT
  Age: 36 Year
  Sex: Female

DRUGS (2)
  1. DICLOFENAC SODIUM. [Concomitant]
     Active Substance: DICLOFENAC SODIUM
     Indication: PREMEDICATION
  2. REBIF [Suspect]
     Active Substance: INTERFERON BETA-1A
     Indication: MULTIPLE SCLEROSIS
     Route: 058
     Dates: start: 20180430, end: 20181116

REACTIONS (15)
  - Pain [Unknown]
  - Varicose vein [Unknown]
  - Arthralgia [Recovered/Resolved]
  - Blood pressure fluctuation [Not Recovered/Not Resolved]
  - Asthenia [Not Recovered/Not Resolved]
  - Immunodeficiency [Not Recovered/Not Resolved]
  - Back pain [Recovered/Resolved]
  - Hyperphagia [Not Recovered/Not Resolved]
  - Weight increased [Not Recovered/Not Resolved]
  - Malaise [Recovered/Resolved]
  - Headache [Recovered/Resolved]
  - Product dispensing error [Unknown]
  - Pyrexia [Unknown]
  - Anxiety [Not Recovered/Not Resolved]
  - Product dose omission [Unknown]

NARRATIVE: CASE EVENT DATE: 2018
